FAERS Safety Report 17780041 (Version 2)
Quarter: 2020Q2

REPORT INFORMATION
  Report Type: Spontaneous
  Country: GB (occurrence: GB)
  Receive Date: 20200513
  Receipt Date: 20200514
  Transmission Date: 20200714
  Serious: Yes (Other)
  Sender: FDA-Public Use
  Company Number: GB-009507513-2005GBR003440

PATIENT
  Age: 25 Year
  Sex: Female
  Weight: 98 kg

DRUGS (1)
  1. NEXPLANON [Suspect]
     Active Substance: ETONOGESTREL
     Indication: DYSMENORRHOEA
     Dosage: 68 MILLIGRAM
     Route: 059
     Dates: start: 20170918

REACTIONS (7)
  - Suicidal ideation [Recovering/Resolving]
  - Thinking abnormal [Unknown]
  - Depressed mood [Unknown]
  - Condition aggravated [Unknown]
  - Dysmenorrhoea [Recovered/Resolved]
  - Intrusive thoughts [Unknown]
  - Loss of libido [Not Recovered/Not Resolved]

NARRATIVE: CASE EVENT DATE: 20200424
